FAERS Safety Report 6621501-1 (Version None)
Quarter: 2010Q1

REPORT INFORMATION
  Report Type: 
  Country: None (occurrence: None)
  Receive Date: 20100223
  Receipt Date: 20091204
  Transmission Date: 20100710
  Serious: No
  Sender: FDA-Public Use
  Company Number: 8050896

PATIENT
  Sex: Female
  Weight: 63.5 kg

DRUGS (2)
  1. CERTOLIZUMAB PEGOL [Suspect]
     Indication: CROHN'S DISEASE
     Dosage: 200 MG, DOSE FREQ.: ONCE MONTHLY SUBCUTANEOUS
     Route: 058
     Dates: start: 20081029
  2. CONTRACEPTIVES NOS [Concomitant]

REACTIONS (5)
  - ABDOMINAL PAIN [None]
  - IMPAIRED HEALING [None]
  - INJECTION SITE PAIN [None]
  - SURGERY [None]
  - URTICARIA [None]
